FAERS Safety Report 9056133 (Version 1)
Quarter: 2013Q1

REPORT INFORMATION
  Report Type: Spontaneous
  Country: DE (occurrence: DE)
  Receive Date: 20130205
  Receipt Date: 20130205
  Transmission Date: 20140127
  Serious: Yes (Other)
  Sender: FDA-Public Use
  Company Number: DE-BRISTOL-MYERS SQUIBB COMPANY-17284324

PATIENT
  Age: 46 Year
  Sex: Male

DRUGS (6)
  1. ABILIFY [Suspect]
     Indication: PSYCHOTIC DISORDER
     Route: 048
  2. ABILIFY [Suspect]
     Indication: SCHIZOPHRENIA
     Route: 048
  3. IRBESARTAN [Suspect]
     Indication: HYPERTENSION
     Route: 048
  4. OMEPRAZOLE [Suspect]
     Indication: GASTROOESOPHAGEAL REFLUX DISEASE
     Route: 048
  5. TORASEMIDE [Suspect]
     Indication: OEDEMA
     Route: 048
  6. VITAMIN D [Concomitant]

REACTIONS (1)
  - Blood creatine phosphokinase increased [Not Recovered/Not Resolved]
